FAERS Safety Report 9652108 (Version 6)
Quarter: 2013Q4

REPORT INFORMATION
  Report Type: Spontaneous
  Country: US (occurrence: US)
  Receive Date: 20131029
  Receipt Date: 20131204
  Transmission Date: 20140711
  Serious: Yes (Hospitalization, Other)
  Sender: FDA-Public Use
  Company Number: US-JNJFOC-20131011902

PATIENT
  Age: 80 Year
  Sex: Female
  Weight: 72.12 kg

DRUGS (11)
  1. XARELTO [Suspect]
     Indication: CEREBROVASCULAR ACCIDENT PROPHYLAXIS
     Dosage: STRENGTH: 15 MG
     Route: 048
     Dates: start: 20130904, end: 20131011
  2. XARELTO [Suspect]
     Indication: ATRIAL FIBRILLATION
     Dosage: STRENGTH: 15 MG
     Route: 048
     Dates: start: 20130904, end: 20131011
  3. METALOZONE [Concomitant]
     Indication: CARDIAC FAILURE CONGESTIVE
     Route: 065
  4. TORSEMIDE [Concomitant]
     Indication: CARDIAC FAILURE CONGESTIVE
     Route: 065
  5. VIT-D3 [Concomitant]
     Indication: VITAMIN D DEFICIENCY
     Route: 065
  6. MULTAQ [Concomitant]
     Indication: ATRIAL FIBRILLATION
     Route: 065
  7. DILTIAZEM [Concomitant]
     Indication: ATRIAL FLUTTER
     Route: 065
  8. DILTIAZEM [Concomitant]
     Indication: ATRIAL FIBRILLATION
     Route: 065
  9. JANUVIA [Concomitant]
     Indication: DIABETES MELLITUS
     Route: 065
  10. LEVOTHYROXINE [Concomitant]
     Indication: THYROID DISORDER
     Route: 065
  11. RENAX [Concomitant]
     Route: 065

REACTIONS (7)
  - Gastrointestinal haemorrhage [Recovering/Resolving]
  - Renal failure [Unknown]
  - Catheter site haematoma [Unknown]
  - Catheter site haemorrhage [Recovering/Resolving]
  - Anaemia [Unknown]
  - Dyspnoea [Unknown]
  - Rectal haemorrhage [Unknown]
